FAERS Safety Report 7346149-5 (Version None)
Quarter: 2011Q1

REPORT INFORMATION
  Report Type: 
  Country: None (occurrence: None)
  Receive Date: 20110311
  Receipt Date: 20110225
  Transmission Date: 20110831
  Serious: Yes (Other)
  Sender: FDA-Public Use
  Company Number: DE-RANBAXY-2011RR-42796

PATIENT
  Age: 10 Year
  Sex: Male

DRUGS (1)
  1. CEFACLOR BASICS 250 MG TS [Suspect]
     Indication: SINUSITIS

REACTIONS (2)
  - DIZZINESS [None]
  - CONVULSION [None]
